FAERS Safety Report 6684866-0 (Version None)
Quarter: 2010Q2

REPORT INFORMATION
  Report Type: 
  Country: None (occurrence: None)
  Receive Date: 20100416
  Receipt Date: 20100407
  Transmission Date: 20101027
  Serious: Yes (Hospitalization)
  Sender: FDA-Public Use
  Company Number: GB-MERCK-1004GBR00022

PATIENT
  Age: 69 Year

DRUGS (5)
  1. ZOCOR [Suspect]
     Route: 048
  2. WARFARIN [Interacting]
     Indication: ATRIAL FIBRILLATION
     Route: 048
  3. ALLOPURINOL [Concomitant]
     Route: 048
  4. BISOPROLOL [Concomitant]
     Route: 048
  5. PERINDOPRIL [Concomitant]
     Route: 048

REACTIONS (3)
  - DRUG INTERACTION [None]
  - EPISTAXIS [None]
  - INTERNATIONAL NORMALISED RATIO INCREASED [None]
